FAERS Safety Report 9967701 (Version 2)
Quarter: 2014Q1

REPORT INFORMATION
  Report Type: Spontaneous
  Country: JP (occurrence: JP)
  Receive Date: 20140306
  Receipt Date: 20140328
  Transmission Date: 20141002
  Serious: Yes (Other)
  Sender: FDA-Public Use
  Company Number: JP-009507513-1403JPN000911

PATIENT
  Age: 13 Year
  Sex: Female

DRUGS (7)
  1. GASTER [Suspect]
     Indication: PRODUCT USED FOR UNKNOWN INDICATION
     Dosage: UNK
     Route: 048
  2. PREDONINE [Concomitant]
     Indication: SYSTEMIC LUPUS ERYTHEMATOSUS
     Dosage: UNK
     Route: 048
     Dates: start: 201302
  3. PREDONINE [Concomitant]
     Indication: LUPUS NEPHRITIS
  4. PREDONINE [Concomitant]
     Indication: SYSTEMIC LUPUS ERYTHEMATOSUS
     Dosage: UNK
     Dates: start: 20140122, end: 20140123
  5. PREDONINE [Concomitant]
     Indication: LUPUS NEPHRITIS
  6. METHYLPREDNISOLONE SODIUM SUCCINATE [Concomitant]
     Indication: SYSTEMIC LUPUS ERYTHEMATOSUS
     Dosage: UNK
     Dates: start: 20140124, end: 20140203
  7. METHYLPREDNISOLONE SODIUM SUCCINATE [Concomitant]
     Indication: LUPUS NEPHRITIS

REACTIONS (2)
  - Generalised erythema [Unknown]
  - Off label use [Unknown]
